FAERS Safety Report 4642634-5 (Version None)
Quarter: 2005Q2

REPORT INFORMATION
  Report Type: 
  Country: None (occurrence: None)
  Receive Date: 20050420
  Receipt Date: 20050407
  Transmission Date: 20051028
  Serious: Yes (Other)
  Sender: FDA-Public Use
  Company Number: 2005057688

PATIENT
  Age: 70 Year
  Sex: Female

DRUGS (2)
  1. CELECOXIB (CELECOXIB) [Suspect]
     Indication: JOINT INJURY
     Dosage: UNKNOWN
     Route: 065
  2. ATORVASTATIN CALCIUM [Suspect]
     Indication: HYPERLIPIDAEMIA
     Dosage: UNKNOWN
     Route: 065

REACTIONS (9)
  - BLOOD ALBUMIN DECREASED [None]
  - BLOOD CHOLESTEROL INCREASED [None]
  - BLOOD TRIGLYCERIDES INCREASED [None]
  - NEPHROLITHIASIS [None]
  - NEPHROTIC SYNDROME [None]
  - OEDEMA PERIPHERAL [None]
  - OSTEOARTHRITIS [None]
  - RED BLOOD CELLS URINE POSITIVE [None]
  - RENAL DISORDER [None]
